FAERS Safety Report 17174896 (Version 1)
Quarter: 2019Q4

REPORT INFORMATION
  Report Type: Spontaneous
  Country: US (occurrence: US)
  Receive Date: 20191218
  Receipt Date: 20191218
  Transmission Date: 20200122
  Serious: Yes (Other)
  Sender: FDA-Public Use
  Company Number: None

PATIENT
  Age: 34 Year
  Sex: Male
  Weight: 146.25 kg

DRUGS (3)
  1. IBUPROFEN. [Concomitant]
     Active Substance: IBUPROFEN
  2. CPAP [Concomitant]
     Active Substance: DEVICE
  3. METHYLPHENIDATE ER 54 MG TAB SUBSTITUTED FOR CONCERTA ER 54 MG [Suspect]
     Active Substance: METHYLPHENIDATE HYDROCHLORIDE
     Indication: ATTENTION DEFICIT/HYPERACTIVITY DISORDER
     Dosage: ?          QUANTITY:1 TABLET(S);?
     Route: 048
     Dates: start: 20191204

REACTIONS (9)
  - Anxiety [None]
  - Libido disorder [None]
  - Palpitations [None]
  - Disturbance in attention [None]
  - Body temperature fluctuation [None]
  - Withdrawal syndrome [None]
  - Insomnia [None]
  - Lethargy [None]
  - Appetite disorder [None]

NARRATIVE: CASE EVENT DATE: 20191206
